FAERS Safety Report 8119246-4 (Version None)
Quarter: 2012Q1

REPORT INFORMATION
  Report Type: 
  Country: None (occurrence: None)
  Receive Date: 20120207
  Receipt Date: 20120125
  Transmission Date: 20120608
  Serious: Yes (Death)
  Sender: FDA-Public Use
  Company Number: KH-ROCHE-1034211

PATIENT
  Age: 25 Year
  Sex: Female

DRUGS (1)
  1. TAMIFLU [Suspect]
     Indication: PRODUCT USED FOR UNKNOWN INDICATION

REACTIONS (16)
  - DIARRHOEA [None]
  - CYANOSIS [None]
  - ANXIETY [None]
  - RESPIRATORY FAILURE [None]
  - VOMITING [None]
  - FATIGUE [None]
  - MYALGIA [None]
  - MOOD ALTERED [None]
  - CARDIAC FAILURE [None]
  - ACUTE RESPIRATORY DISTRESS SYNDROME [None]
  - SPUTUM INCREASED [None]
  - PSYCHOTIC DISORDER [None]
  - ASPARTATE AMINOTRANSFERASE INCREASED [None]
  - INFLUENZA [None]
  - ALANINE AMINOTRANSFERASE INCREASED [None]
  - PNEUMONIA [None]
